FAERS Safety Report 5364380-5 (Version None)
Quarter: 2007Q2

REPORT INFORMATION
  Report Type: 
  Country: None (occurrence: None)
  Receive Date: 20070618
  Receipt Date: 20070609
  Transmission Date: 20071010
  Serious: Yes (Other)
  Sender: FDA-Public Use
  Company Number: 2007SP011720

PATIENT
  Age: 53 Year
  Sex: Female

DRUGS (2)
  1. PEG-INTRON [Suspect]
     Indication: HEPATITIS C
     Dosage: SC
     Route: 058
     Dates: start: 20070528
  2. RIBASPHERE [Suspect]
     Indication: HEPATITIS C
     Dosage: PO
     Route: 048
     Dates: start: 20070528

REACTIONS (20)
  - BRONCHITIS [None]
  - CHAPPED LIPS [None]
  - CONDITION AGGRAVATED [None]
  - DEHYDRATION [None]
  - DIARRHOEA [None]
  - DRY SKIN [None]
  - DYSPHAGIA [None]
  - FEELING ABNORMAL [None]
  - FLUID INTAKE REDUCED [None]
  - HAEMATOCHEZIA [None]
  - HEART RATE IRREGULAR [None]
  - MELAENA [None]
  - MITRAL VALVE PROLAPSE [None]
  - MOUTH ULCERATION [None]
  - ORAL MUCOSAL BLISTERING [None]
  - ORAL PAIN [None]
  - PHARYNGOLARYNGEAL PAIN [None]
  - RECTAL HAEMORRHAGE [None]
  - TONGUE BLISTERING [None]
  - TONGUE ULCERATION [None]
